FAERS Safety Report 17339230 (Version 1)
Quarter: 2020Q1

REPORT INFORMATION
  Report Type: Spontaneous
  Country: US (occurrence: US)
  Receive Date: 20200129
  Receipt Date: 20200129
  Transmission Date: 20200409
  Serious: No
  Sender: FDA-Public Use
  Company Number: US-GLAXOSMITHKLINE-US2020AMR010297

PATIENT
  Sex: Male

DRUGS (2)
  1. BELIMUMAB SOLUTION FOR INJECTION [Suspect]
     Active Substance: BELIMUMAB
     Indication: SYSTEMIC LUPUS ERYTHEMATOSUS
     Dosage: UNK
     Route: 005
     Dates: start: 2018
  2. BENLYSTA [Suspect]
     Active Substance: BELIMUMAB
     Indication: SYSTEMIC LUPUS ERYTHEMATOSUS
     Dosage: UNK
     Route: 042

REACTIONS (4)
  - Chest pain [Unknown]
  - Drug ineffective [Unknown]
  - Fear [Recovered/Resolved]
  - Discomfort [Recovered/Resolved]
